FAERS Safety Report 10451296 (Version 1)
Quarter: 2014Q3

REPORT INFORMATION
  Report Type: Spontaneous
  Country: DE (occurrence: DE)
  Receive Date: 20140912
  Receipt Date: 20140912
  Transmission Date: 20150326
  Serious: Yes (Death, Other)
  Sender: FDA-Public Use
  Company Number: PHHY2014DE116759

PATIENT
  Age: 46 Year
  Sex: Male

DRUGS (8)
  1. CICLOSPORIN [Suspect]
     Active Substance: CYCLOSPORINE
     Indication: PROPHYLAXIS AGAINST GRAFT VERSUS HOST DISEASE
     Dosage: 3 MG/KG, UNK
     Route: 042
  2. PREDNISOLONE. [Suspect]
     Active Substance: PREDNISOLONE
     Dosage: 0.5 MG/KG, UNK
  3. BUSULFAN [Suspect]
     Active Substance: BUSULFAN
     Dosage: 8 MG/KG, UNK
  4. CICLOSPORIN [Suspect]
     Active Substance: CYCLOSPORINE
     Dosage: 2 MG/KG, UNK
  5. PREDNISOLONE. [Suspect]
     Active Substance: PREDNISOLONE
     Indication: GRAFT VERSUS HOST DISEASE IN SKIN
     Dosage: 2 MG/KG
  6. FLUDARABINE [Suspect]
     Active Substance: FLUDARABINE PHOSPHATE
     Dosage: 150 MG/M2, UNK
  7. MYCOPHENOLATE MOFETIL. [Suspect]
     Active Substance: MYCOPHENOLATE MOFETIL
     Indication: PROPHYLAXIS AGAINST GRAFT VERSUS HOST DISEASE
     Dosage: 1 G, BID
  8. PREDNISOLONE. [Suspect]
     Active Substance: PREDNISOLONE
     Dosage: 1 MG/KG, UNK

REACTIONS (12)
  - Metastases to skin [Fatal]
  - Graft versus host disease in skin [Not Recovered/Not Resolved]
  - Tonsillitis [Recovering/Resolving]
  - Clear cell renal cell carcinoma [Fatal]
  - Skin mass [Fatal]
  - Skin erosion [Fatal]
  - Malignant neoplasm progression [Fatal]
  - Dysphagia [Unknown]
  - Skin haemorrhage [Fatal]
  - Graft versus host disease [Not Recovered/Not Resolved]
  - Oropharyngeal pain [Unknown]
  - Bronchopulmonary aspergillosis [Fatal]

NARRATIVE: CASE EVENT DATE: 200112
